FAERS Safety Report 8988427 (Version 1)
Quarter: 2012Q4

REPORT INFORMATION
  Report Type: Spontaneous
  Country: GB (occurrence: None)
  Receive Date: 20121218
  Receipt Date: 20121218
  Transmission Date: 20130627
  Serious: Yes (Death, Hospitalization)
  Sender: FDA-Public Use
  Company Number: 2012-21869

PATIENT
  Age: 38 Year
  Sex: Male

DRUGS (3)
  1. PARACETAMOL [Suspect]
     Indication: DRUG USE FOR UNKNOWN INDICATION
     Dosage: 10 g, single, Unknown
  2. SALICYLATES NOS (SALICYCLATES NOS) [Concomitant]
  3. IBUPROFEN (IBUPROFEN) [Concomitant]

REACTIONS (4)
  - Sepsis [None]
  - Toxicity to various agents [None]
  - Hepatic function abnormal [None]
  - Overdose [None]
